FAERS Safety Report 24332407 (Version 1)
Quarter: 2024Q3

REPORT INFORMATION
  Report Type: Spontaneous
  Country: US (occurrence: US)
  Receive Date: 20240918
  Receipt Date: 20240918
  Transmission Date: 20241017
  Serious: Yes (Other)
  Sender: STRIDES
  Company Number: US-STRIDES ARCOLAB LIMITED-2024SP011890

PATIENT
  Age: 80 Year
  Sex: Male

DRUGS (2)
  1. MINOCYCLINE [Suspect]
     Active Substance: MINOCYCLINE HYDROCHLORIDE
     Indication: Rosacea
     Dosage: 200 MILLIGRAM, QD
     Route: 048
  2. BEVACIZUMAB [Concomitant]
     Active Substance: BEVACIZUMAB
     Indication: Age-related macular degeneration
     Dosage: UNK
     Route: 065

REACTIONS (3)
  - Retinal pigmentation [Unknown]
  - Skin hyperpigmentation [Unknown]
  - Off label use [Unknown]
